FAERS Safety Report 20411889 (Version 2)
Quarter: 2022Q2

REPORT INFORMATION
  Report Type: Spontaneous
  Country: US (occurrence: US)
  Receive Date: 20220201
  Receipt Date: 20220412
  Transmission Date: 20220720
  Serious: No
  Sender: FDA-Public Use
  Company Number: US-BIOGEN-2022BI01090188

PATIENT
  Sex: Female

DRUGS (1)
  1. TYSABRI [Suspect]
     Active Substance: NATALIZUMAB
     Indication: Multiple sclerosis
     Route: 042
     Dates: start: 20130820, end: 20141020

REACTIONS (5)
  - Dermal cyst [Recovered/Resolved]
  - Subcutaneous abscess [Recovered/Resolved]
  - Abscess limb [Recovered/Resolved]
  - Fistula [Recovered/Resolved]
  - Herpes zoster [Recovered/Resolved]
